FAERS Safety Report 9087310 (Version 1)
Quarter: 2013Q1

REPORT INFORMATION
  Report Type: Spontaneous
  Country: KR (occurrence: KR)
  Receive Date: 20130131
  Receipt Date: 20130131
  Transmission Date: 20140127
  Serious: Yes (Death, Other)
  Sender: FDA-Public Use
  Company Number: KR-PFIZER INC-2013032375

PATIENT
  Age: 39 Year
  Sex: Female

DRUGS (5)
  1. CYTARABINE [Suspect]
     Indication: MYELODYSPLASTIC SYNDROME
     Dosage: 100 MG/M2 FOR 7 DAYS
  2. CYTARABINE [Suspect]
     Dosage: 2000 MG/M2 FOR 5 DAYS
  3. IDARUBICIN HCL [Suspect]
     Indication: MYELODYSPLASTIC SYNDROME
     Dosage: 12MG/M2 FOR 3 DAYS
  4. IDARUBICIN HCL [Suspect]
     Dosage: 12MG/M2 FOR 3 DAYS
  5. FLUDARABINE PHOSPHATE [Suspect]
     Indication: MYELODYSPLASTIC SYNDROME
     Dosage: 30 MG/M2 FOR 5 DAYS

REACTIONS (5)
  - Aspergillus infection [Fatal]
  - Atelectasis [Fatal]
  - Acute respiratory failure [Fatal]
  - Bone marrow failure [Unknown]
  - Febrile neutropenia [Unknown]
